FAERS Safety Report 7269006-1 (Version None)
Quarter: 2011Q1

REPORT INFORMATION
  Report Type: 
  Country: None (occurrence: None)
  Receive Date: 20110202
  Receipt Date: 20110121
  Transmission Date: 20110831
  Serious: Yes (Hospitalization)
  Sender: FDA-Public Use
  Company Number: US-BIOGENIDEC-2010BI021447

PATIENT
  Age: 59 Year
  Sex: Male

DRUGS (1)
  1. TYSABRI [Suspect]
     Indication: MULTIPLE SCLEROSIS
     Route: 042
     Dates: start: 20091229

REACTIONS (5)
  - ARTHRITIS [None]
  - DRUG INEFFECTIVE [None]
  - SPINAL OSTEOARTHRITIS [None]
  - FEELING COLD [None]
  - PERONEAL NERVE PALSY [None]
